FAERS Safety Report 4626373-2 (Version None)
Quarter: 2005Q2

REPORT INFORMATION
  Report Type: 
  Country: None (occurrence: None)
  Receive Date: 20050325
  Receipt Date: 20050113
  Transmission Date: 20051028
  Serious: No
  Sender: FDA-Public Use
  Company Number: USA050188190

PATIENT
  Age: 73 Year
  Sex: Female
  Weight: 66 kg

DRUGS (6)
  1. FORTEO [Suspect]
     Indication: OSTEOPOROSIS
     Dates: start: 20040901
  2. CALCIUM GLUCONATE [Concomitant]
  3. MULTIVITAMIN [Concomitant]
  4. ADVAIR DISKUS 100/50 [Concomitant]
  5. COMBIVENT [Concomitant]
  6. HYZAAR [Concomitant]

REACTIONS (9)
  - ARTHRALGIA [None]
  - ASTHMA [None]
  - CARDIAC DISORDER [None]
  - DYSPNOEA [None]
  - ELECTROCARDIOGRAM ABNORMAL [None]
  - HYPERTENSION [None]
  - INJECTION SITE ERYTHEMA [None]
  - PAIN IN JAW [None]
  - PALPITATIONS [None]
